FAERS Safety Report 6227204-X (Version None)
Quarter: 2009Q2

REPORT INFORMATION
  Report Type: 
  Country: None (occurrence: None)
  Receive Date: 20090612
  Receipt Date: 20090609
  Transmission Date: 20091009
  Serious: Yes (Hospitalization, Other)
  Sender: FDA-Public Use
  Company Number: JP-BAYER-200812386BYL

PATIENT
  Age: 50 Year
  Sex: Male
  Weight: 60 kg

DRUGS (8)
  1. NEXAVAR [Suspect]
     Indication: RENAL CELL CARCINOMA STAGE IV
     Dosage: TOTAL DAILY DOSE: 800 MG  UNIT DOSE: 200 MG
     Route: 048
     Dates: start: 20080819, end: 20081006
  2. NEXAVAR [Suspect]
     Dosage: UNIT DOSE: 200 MG
     Route: 048
     Dates: start: 20081202, end: 20090512
  3. NEXAVAR [Suspect]
     Dosage: UNIT DOSE: 200 MG
     Route: 048
     Dates: start: 20090513, end: 20090601
  4. NEXAVAR [Suspect]
     Route: 048
     Dates: start: 20090601
  5. TAGAMET [Concomitant]
     Route: 048
     Dates: start: 20060220, end: 20081007
  6. TOYOFAROL [Concomitant]
     Indication: BLOOD CALCIUM DECREASED
     Route: 048
     Dates: start: 20070710, end: 20081007
  7. TOYOFAROL [Concomitant]
     Route: 048
     Dates: start: 20090407
  8. PROTECADIN [Concomitant]
     Route: 048
     Dates: start: 20081223

REACTIONS (7)
  - ERYTHEMA MULTIFORME [None]
  - HEPATIC FUNCTION ABNORMAL [None]
  - HYPERTENSION [None]
  - LIPASE INCREASED [None]
  - PALMAR-PLANTAR ERYTHRODYSAESTHESIA SYNDROME [None]
  - PLATELET COUNT DECREASED [None]
  - WHITE BLOOD CELL COUNT DECREASED [None]
